FAERS Safety Report 13609527 (Version 1)
Quarter: 2017Q2

REPORT INFORMATION
  Report Type: Report from Study
  Country: JP (occurrence: JP)
  Receive Date: 20170602
  Receipt Date: 20170602
  Transmission Date: 20170830
  Serious: Yes (Other)
  Sender: FDA-Public Use
  Company Number: JP-DEPOMED, INC.-JP-2017DEP001187

PATIENT
  Age: 77 Year
  Sex: Female

DRUGS (2)
  1. LOXOPROFEN [Suspect]
     Active Substance: LOXOPROFEN
     Indication: CANCER PAIN
     Dosage: 120 MG, QD
     Route: 048
  2. TAPENTADOL HYDROCHLORIDE [Suspect]
     Active Substance: TAPENTADOL HYDROCHLORIDE
     Indication: CANCER PAIN
     Dosage: 25 MG, QD
     Route: 048
     Dates: start: 20161122, end: 20161122

REACTIONS (3)
  - Dyspepsia [Recovered/Resolved]
  - Blood lactate dehydrogenase increased [Not Recovered/Not Resolved]
  - Blood sodium decreased [Not Recovered/Not Resolved]

NARRATIVE: CASE EVENT DATE: 20161122
